FAERS Safety Report 7659004-8 (Version None)
Quarter: 2011Q3

REPORT INFORMATION
  Report Type: 
  Country: None (occurrence: None)
  Receive Date: 20110805
  Receipt Date: 20110722
  Transmission Date: 20111222
  Serious: Yes (Hospitalization)
  Sender: FDA-Public Use
  Company Number: US-ELI_LILLY_AND_COMPANY-US201001002542

PATIENT
  Sex: Female

DRUGS (4)
  1. FORTEO [Suspect]
     Dosage: 20 UG, DAILY (1/D)
     Route: 058
     Dates: start: 20100113
  2. FORTEO [Suspect]
     Dosage: 20 UG, QD
     Route: 058
  3. FORTEO [Suspect]
     Indication: OSTEOPOROSIS
     Dosage: 20 UG, DAILY (1/D)
     Route: 058
     Dates: start: 20091231, end: 20100112
  4. FORTEO [Suspect]
     Dosage: 20 UG, QD
     Route: 058

REACTIONS (13)
  - DEVICE FAILURE [None]
  - PAIN IN EXTREMITY [None]
  - CHILLS [None]
  - ARTHRALGIA [None]
  - PRURITUS [None]
  - NAUSEA [None]
  - BONE DISORDER [None]
  - PAIN [None]
  - BED REST [None]
  - INJECTION SITE PRURITUS [None]
  - INFLUENZA [None]
  - DEVICE DISLOCATION [None]
  - MUSCLE SPASMS [None]
